FAERS Safety Report 7321225-1 (Version None)
Quarter: 2011Q1

REPORT INFORMATION
  Report Type: 
  Country: None (occurrence: None)
  Receive Date: 20110228
  Receipt Date: 20110217
  Transmission Date: 20110831
  Serious: Yes (Disabling)
  Sender: FDA-Public Use
  Company Number: MX-ASTRAZENECA-2011SE09808

PATIENT
  Age: 13520 Day
  Sex: Male

DRUGS (4)
  1. AKINETON [Concomitant]
     Indication: SCHIZOPHRENIA
  2. HALDOL [Concomitant]
     Indication: SCHIZOPHRENIA
  3. CLONAZEPAM [Concomitant]
     Indication: SLEEP DISORDER
  4. SEROQUEL [Suspect]
     Indication: SCHIZOPHRENIA
     Route: 048
     Dates: start: 20110216

REACTIONS (4)
  - ORTHOSTATIC HYPOTENSION [None]
  - HYPOTENSION [None]
  - VOMITING [None]
  - LIP DISCOLOURATION [None]
